FAERS Safety Report 5097548-6 (Version None)
Quarter: 2006Q3

REPORT INFORMATION
  Report Type: 
  Country: None (occurrence: None)
  Receive Date: 20060901
  Receipt Date: 20060822
  Transmission Date: 20061208
  Serious: Yes (Other)
  Sender: FDA-Public Use
  Company Number: T200600165

PATIENT
  Age: 69 Year
  Sex: Female

DRUGS (3)
  1. OPTIRAY 240 [Suspect]
     Indication: COMPUTERISED TOMOGRAM HEAD
     Dosage: 95 ML SINGLE INTRAVENOUS
     Route: 042
     Dates: start: 20060331, end: 20060331
  2. METHYCOBAL (MECOBALAMIN) TABLET [Concomitant]
  3. CEPHADOL (DIFENIDOL HYDROCHLORIDE) [Concomitant]

REACTIONS (7)
  - CHILLS [None]
  - DEPRESSED LEVEL OF CONSCIOUSNESS [None]
  - HEADACHE [None]
  - NAUSEA [None]
  - OXYGEN SATURATION DECREASED [None]
  - PROCEDURAL COMPLICATION [None]
  - SHOCK [None]
